FAERS Safety Report 9070021 (Version 1)
Quarter: 2013Q1

REPORT INFORMATION
  Report Type: Report from Study
  Country: US (occurrence: US)
  Receive Date: 20130129
  Receipt Date: 20130129
  Transmission Date: 20140127
  Serious: No
  Sender: FDA-Public Use
  Company Number: US-ABBOTT-12P-163-0939297-00

PATIENT
  Age: 66 Year
  Sex: Female

DRUGS (8)
  1. HUMIRA 40 MG/0.8 ML PEN [Suspect]
     Indication: PSORIASIS
     Dosage: ONE DOSE ONLY
     Route: 058
     Dates: start: 20120517, end: 20120517
  2. HUMIRA 40 MG/0.8 ML PEN [Suspect]
  3. VERAPAMIL [Concomitant]
     Indication: HYPERTENSION
     Dosage: 240MG EVERY DAY
  4. ULTRAM [Concomitant]
     Indication: PAIN
  5. ULTRAM [Concomitant]
     Indication: BACK PAIN
     Dosage: UP TO 6 IN 24 HOURS
  6. XANAX [Concomitant]
     Indication: ANXIETY
     Dosage: 0.05 OR 0.5 AS NEEDED
  7. TRIAMCINOLONE ACETONIDE [Concomitant]
     Indication: PRODUCT USED FOR UNKNOWN INDICATION
     Route: 061
  8. UNKNOWN MEDICATION [Concomitant]
     Indication: PRODUCT USED FOR UNKNOWN INDICATION
     Route: 061

REACTIONS (7)
  - Pruritus [Recovering/Resolving]
  - Psoriasis [Recovering/Resolving]
  - Psoriasis [Unknown]
  - Psoriasis [Unknown]
  - Skin burning sensation [Recovered/Resolved]
  - Skin irritation [Recovered/Resolved]
  - Discomfort [Recovered/Resolved]
